FAERS Safety Report 7020905-5 (Version None)
Quarter: 2010Q3

REPORT INFORMATION
  Report Type: 
  Country: None (occurrence: None)
  Receive Date: 20100924
  Receipt Date: 20100910
  Transmission Date: 20110219
  Serious: Yes (Other)
  Sender: FDA-Public Use
  Company Number: 011037

PATIENT

DRUGS (7)
  1. BUSULFEX [Suspect]
     Indication: BONE MARROW CONDITIONING REGIMEN
     Dosage: 3.2 MG/KG, DAILY DOSE, INTRAVENOUS
     Route: 042
  2. CYCLOPHOSPHAMIDE [Concomitant]
  3. CYCLOSPORINE [Concomitant]
  4. PREDNISOLONE [Concomitant]
  5. CPTRIMOXAZOL ^ALIUD^ (SULFAMETHOXAZOLE, TRIMETHOPRIM) [Concomitant]
  6. FLUCONAZOLE [Concomitant]
  7. ACYCLOVIR [Concomitant]

REACTIONS (3)
  - GRAFT VERSUS HOST DISEASE [None]
  - RENAL FAILURE ACUTE [None]
  - SEPSIS [None]
